FAERS Safety Report 7425015-0 (Version None)
Quarter: 2011Q2

REPORT INFORMATION
  Report Type: 
  Country: None (occurrence: None)
  Receive Date: 20110419
  Receipt Date: 20110412
  Transmission Date: 20111010
  Serious: Yes (Life-Threatening, Hospitalization)
  Sender: FDA-Public Use
  Company Number: US-BRISTOL-MYERS SQUIBB COMPANY-15524978

PATIENT
  Age: 74 Year
  Sex: Female

DRUGS (6)
  1. IPILIMUMAB [Suspect]
     Indication: MALIGNANT MELANOMA
     Route: 042
     Dates: start: 20100723, end: 20100923
  2. LEVOTHYROXINE SODIUM [Concomitant]
  3. LISINOPRIL [Concomitant]
     Dosage: LISINOPRIL 5MG;1DF=1/2 TAB DAILY
  4. METOPROLOL SUCCINATE [Concomitant]
     Dosage: 1DF=50 .
  5. ASPIRIN [Concomitant]
  6. AMIODARONE HCL [Concomitant]

REACTIONS (1)
  - MYASTHENIA GRAVIS [None]
